FAERS Safety Report 5774695-4 (Version None)
Quarter: 2008Q2

REPORT INFORMATION
  Report Type: 
  Country: None (occurrence: None)
  Receive Date: 20080617
  Receipt Date: 20080611
  Transmission Date: 20081010
  Serious: Yes (Other)
  Sender: FDA-Public Use
  Company Number: JP-BAYER-200810827BYL

PATIENT
  Age: 26 Year
  Sex: Male

DRUGS (5)
  1. BETAFERON [Suspect]
     Indication: RELAPSING-REMITTING MULTIPLE SCLEROSIS
     Dosage: TOTAL DAILY DOSE: 8 MIU
     Route: 058
     Dates: start: 20051214, end: 20060225
  2. BETAFERON [Suspect]
     Dosage: TOTAL DAILY DOSE: 8 MIU
     Route: 058
     Dates: start: 20060811, end: 20061031
  3. PREDONINE [Concomitant]
     Indication: RELAPSING-REMITTING MULTIPLE SCLEROSIS
     Route: 048
     Dates: start: 20051118, end: 20051213
  4. METHYLPREDNISOLONE [Concomitant]
     Indication: RELAPSING-REMITTING MULTIPLE SCLEROSIS
     Route: 042
     Dates: start: 20051118, end: 20051120
  5. LOXONIN [Concomitant]
     Indication: PYREXIA
     Route: 048

REACTIONS (1)
  - MENINGITIS ASEPTIC [None]
